FAERS Safety Report 7223171-0 (Version None)
Quarter: 2011Q1

REPORT INFORMATION
  Report Type: 
  Country: None (occurrence: None)
  Receive Date: 20110112
  Receipt Date: 20100211
  Transmission Date: 20110831
  Serious: No
  Sender: FDA-Public Use
  Company Number: US-ALLERGAN-1001839US

PATIENT
  Age: 75 Year
  Sex: Female

DRUGS (3)
  1. MUCINEX [Concomitant]
     Indication: NASOPHARYNGITIS
  2. ZITHROMAX [Concomitant]
     Indication: SINUSITIS
  3. RESTASIS [Suspect]
     Indication: DRY EYE
     Dosage: 1 GTT, BID
     Route: 047
     Dates: start: 20100122

REACTIONS (2)
  - DRY EYE [None]
  - FOREIGN BODY [None]
